FAERS Safety Report 12287518 (Version 1)
Quarter: 2016Q2

REPORT INFORMATION
  Report Type: Report from Study
  Country: US (occurrence: US)
  Receive Date: 20160420
  Receipt Date: 20160420
  Transmission Date: 20160815
  Serious: Yes (Hospitalization, Other)
  Sender: FDA-Public Use
  Company Number: US-BAYER-2016-034521

PATIENT
  Age: 67 Year
  Sex: Male

DRUGS (1)
  1. STIVARGA [Suspect]
     Active Substance: REGORAFENIB
     Indication: COLON CANCER
     Dosage: 80 MG, QD FOR 21 DAYS EVERY 28 DAYS
     Route: 048
     Dates: start: 20160113, end: 20160126

REACTIONS (4)
  - Pancreatitis [Recovering/Resolving]
  - Metastases to liver [None]
  - Abdominal pain [Recovered/Resolved]
  - Metastases to lung [None]

NARRATIVE: CASE EVENT DATE: 2016
